FAERS Safety Report 4348639-6 (Version None)
Quarter: 2004Q2

REPORT INFORMATION
  Report Type: 
  Country: None (occurrence: None)
  Receive Date: 20040423
  Receipt Date: 20040412
  Transmission Date: 20050107
  Serious: Yes (Life-Threatening, Hospitalization, Disabling)
  Sender: FDA-Public Use
  Company Number: 2002AP00625

PATIENT
  Age: 55 Year
  Sex: Female
  Weight: 40 kg

DRUGS (8)
  1. IRESSA [Suspect]
     Indication: ADENOCARCINOMA
     Dosage: 250 MG DAILY PO
     Route: 048
     Dates: start: 20020216, end: 20020228
  2. IRESSA [Suspect]
     Indication: NON-SMALL CELL LUNG CANCER
     Dosage: 250 MG DAILY PO
     Route: 048
     Dates: start: 20020216, end: 20020228
  3. IRESSA [Suspect]
     Indication: ADENOCARCINOMA
     Dosage: 250 MG DAILY PO
     Route: 048
     Dates: start: 20020403
  4. IRESSA [Suspect]
     Indication: NON-SMALL CELL LUNG CANCER
     Dosage: 250 MG DAILY PO
     Route: 048
     Dates: start: 20020403
  5. IRRADIATION [Concomitant]
  6. CISPLATIN [Concomitant]
  7. DOCETAXEL [Concomitant]
  8. CPT-11 [Concomitant]

REACTIONS (2)
  - ACUTE RESPIRATORY FAILURE [None]
  - CHEST X-RAY ABNORMAL [None]
